FAERS Safety Report 11009434 (Version 1)
Quarter: 2015Q2

REPORT INFORMATION
  Report Type: Spontaneous
  Country: US (occurrence: US)
  Receive Date: 20150410
  Receipt Date: 20150410
  Transmission Date: 20150821
  Serious: No
  Sender: FDA-Public Use
  Company Number: US-BAUSCH-BL-2015-003867

PATIENT
  Sex: Female

DRUGS (2)
  1. SYNTHROID [Concomitant]
     Active Substance: LEVOTHYROXINE SODIUM
     Indication: PRODUCT USED FOR UNKNOWN INDICATION
  2. ZYCLARA [Suspect]
     Active Substance: IMIQUIMOD
     Indication: BASAL CELL CARCINOMA
     Route: 061
     Dates: start: 20150220, end: 20150224

REACTIONS (7)
  - Feeling hot [Not Recovered/Not Resolved]
  - Lip discolouration [Not Recovered/Not Resolved]
  - Blister [Not Recovered/Not Resolved]
  - Lip swelling [Not Recovered/Not Resolved]
  - Lip pain [Not Recovered/Not Resolved]
  - Scab [Not Recovered/Not Resolved]
  - Pain [Not Recovered/Not Resolved]
